APPROVED DRUG PRODUCT: CEPHALEXIN
Active Ingredient: CEPHALEXIN
Strength: EQ 250MG BASE
Dosage Form/Route: CAPSULE;ORAL
Application: A062809 | Product #001
Applicant: PUREPAC PHARMACEUTICAL CO
Approved: Apr 22, 1987 | RLD: No | RS: No | Type: DISCN